FAERS Safety Report 9995258 (Version 2)
Quarter: 2014Q2

REPORT INFORMATION
  Report Type: Report from Study
  Country: NL (occurrence: NL)
  Receive Date: 20140311
  Receipt Date: 20140506
  Transmission Date: 20141212
  Serious: Yes (Death)
  Sender: FDA-Public Use
  Company Number: NL-ROCHE-1363381

PATIENT
  Sex: Male

DRUGS (13)
  1. MIRCERA [Suspect]
     Indication: NEPHROGENIC ANAEMIA
     Dosage: 0.3 ML WWSP
     Route: 058
     Dates: start: 20130613
  2. SINTROM [Concomitant]
  3. BISOPROLOL [Concomitant]
  4. DUTASTERIDE [Concomitant]
  5. EPLERENONE [Concomitant]
  6. LISINOPRIL [Concomitant]
  7. TAMSULOSINE [Concomitant]
  8. NEXIUM [Concomitant]
  9. CALCICHEW [Concomitant]
  10. BURINEX [Concomitant]
  11. EUTHYROX [Concomitant]
  12. FERROUS FUMARATE [Concomitant]
  13. AMIODARONA [Concomitant]

REACTIONS (1)
  - Cardiac failure [Fatal]
